FAERS Safety Report 25473896 (Version 1)
Quarter: 2025Q2

REPORT INFORMATION
  Report Type: Spontaneous
  Country: US (occurrence: US)
  Receive Date: 20250624
  Receipt Date: 20250624
  Transmission Date: 20250717
  Serious: No
  Sender: TEVA
  Company Number: US-TEVA-VS-3342448

PATIENT
  Age: 46 Year
  Sex: Female

DRUGS (2)
  1. AJOVY [Suspect]
     Active Substance: FREMANEZUMAB-VFRM
     Indication: Migraine
     Route: 065
  2. AJOVY [Suspect]
     Active Substance: FREMANEZUMAB-VFRM
     Indication: Migraine without aura

REACTIONS (5)
  - Injection site swelling [Unknown]
  - Pain [Unknown]
  - Gait inability [Unknown]
  - Injection site pruritus [Unknown]
  - Back pain [Unknown]
